FAERS Safety Report 7480708-4 (Version None)
Quarter: 2011Q2

REPORT INFORMATION
  Report Type: 
  Country: None (occurrence: None)
  Receive Date: 20110516
  Receipt Date: 20110503
  Transmission Date: 20111010
  Serious: No
  Sender: FDA-Public Use
  Company Number: US-BAYER-2011-038615

PATIENT
  Age: 23 Year
  Sex: Female

DRUGS (1)
  1. MIRENA [Suspect]
     Indication: CONTRACEPTION
     Dosage: 20 ?G, CONT
     Route: 015
     Dates: start: 20110301

REACTIONS (8)
  - HYPOAESTHESIA [None]
  - GENITAL HAEMORRHAGE [None]
  - MUSCULAR WEAKNESS [None]
  - ASTHENIA [None]
  - PELVIC PAIN [None]
  - PAIN [None]
  - PLATELET COUNT DECREASED [None]
  - VULVOVAGINAL PAIN [None]
